FAERS Safety Report 5312001-X (Version None)
Quarter: 2007Q2

REPORT INFORMATION
  Report Type: 
  Country: None (occurrence: None)
  Receive Date: 20070430
  Receipt Date: 20060607
  Transmission Date: 20071010
  Serious: No
  Sender: FDA-Public Use
  Company Number: 2006UW11997

PATIENT
  Age: 33 Year
  Sex: Male

DRUGS (1)
  1. NEXIUM [Suspect]
     Route: 048

REACTIONS (5)
  - ILL-DEFINED DISORDER [None]
  - OESOPHAGOGASTRIC FUNDOPLASTY [None]
  - PNEUMONIA [None]
  - REFLUX OESOPHAGITIS [None]
  - RESPIRATORY DISORDER [None]
